FAERS Safety Report 19437223 (Version 1)
Quarter: 2021Q2

REPORT INFORMATION
  Report Type: Report from Study
  Country: US (occurrence: US)
  Receive Date: 20210618
  Receipt Date: 20210618
  Transmission Date: 20210717
  Serious: Yes (Death)
  Sender: FDA-Public Use
  Company Number: US-CHIESI-2021CHF02923

PATIENT
  Age: 62 Year
  Sex: Male
  Weight: 85 kg

DRUGS (7)
  1. CLOPIDOGREL [Interacting]
     Active Substance: CLOPIDOGREL BISULFATE
     Indication: ANTIPLATELET THERAPY
     Dosage: 600 MILLIGRAM
     Dates: start: 20210309, end: 20210310
  2. FENTANYL. [Concomitant]
     Active Substance: FENTANYL
     Indication: PRODUCT USED FOR UNKNOWN INDICATION
     Dosage: UNK
     Dates: start: 20210308
  3. KENGREAL [Interacting]
     Active Substance: CANGRELOR
     Indication: OFF LABEL USE
     Dosage: 4 UNK
     Route: 042
     Dates: start: 20210309, end: 20210312
  4. KENGREAL [Suspect]
     Active Substance: CANGRELOR
     Indication: ANTIPLATELET THERAPY
     Dosage: 30 MICROGRAM/KILOGRAM, (1X)
     Route: 040
     Dates: start: 20210309, end: 20210309
  5. ASPIRIN [ACETYLSALICYLIC ACID] [Concomitant]
     Active Substance: ASPIRIN
     Indication: PRODUCT USED FOR UNKNOWN INDICATION
     Dosage: UNK, QD
  6. OXYCODONE [Concomitant]
     Active Substance: OXYCODONE
     Indication: PRODUCT USED FOR UNKNOWN INDICATION
     Dosage: UNK
     Dates: start: 20210308
  7. HEPARIN [Concomitant]
     Active Substance: HEPARIN SODIUM
     Indication: ANTICOAGULANT THERAPY
     Dosage: UNK
     Dates: start: 20210309, end: 20210312

REACTIONS (3)
  - Cardiac arrest [Fatal]
  - Off label use [Recovered/Resolved]
  - Labelled drug-drug interaction medication error [Fatal]

NARRATIVE: CASE EVENT DATE: 202103
